FAERS Safety Report 16424569 (Version 1)
Quarter: 2019Q2

REPORT INFORMATION
  Report Type: Spontaneous
  Country: NL (occurrence: NL)
  Receive Date: 20190613
  Receipt Date: 20190613
  Transmission Date: 20190711
  Serious: Yes (Hospitalization)
  Sender: FDA-Public Use
  Company Number: NL-TEVA-2019-NL-1061640

PATIENT
  Age: 72 Year
  Sex: Female
  Weight: 115 kg

DRUGS (13)
  1. PANTOPRAZOL, 20 MG [Concomitant]
     Dosage: 1DD1
  2. PARACETAMOL, 1.000 MG [Concomitant]
     Dosage: 4DD1
  3. ACETYLCYSTEINE, 600 MG [Concomitant]
     Dosage: IF NECESSARY 1DD
  4. LISINOPRIL, 20 MG [Concomitant]
     Active Substance: LISINOPRIL
     Dosage: 1DD1
  5. FORMOTEROL 12MCG/DO [Concomitant]
     Dosage: 24MCG 2DD
  6. GLICLAZIDE, 60 MG [Concomitant]
     Dosage: 1DD1
  7. METOPROLOLSUCCINAAT, 50 MG [Concomitant]
     Dosage: 1DD1
  8. BUMETANIDE, 5 MG [Concomitant]
     Dosage: 2DD1
  9. SPIRONOLACTON TABLET, 100 MG (MILLIGRAM) [Suspect]
     Active Substance: SPIRONOLACTONE
     Indication: CARDIAC FAILURE
     Dates: start: 20190313, end: 20190506
  10. ROSUVASTATINE, 10 MG [Concomitant]
     Dosage: 1DD1
  11. METFORMINE, 500 MG [Concomitant]
  12. TIOTROPIUM, 5 MCG [Concomitant]
     Dosage: 5MCG 1DD
  13. DESMOPRESSINE 10MCG/DO [Concomitant]
     Dosage: IF NECESSARY 1DD

REACTIONS (2)
  - Acute kidney injury [Recovered/Resolved]
  - Diarrhoea [Recovered/Resolved]

NARRATIVE: CASE EVENT DATE: 20190401
